FAERS Safety Report 7250469-2 (Version None)
Quarter: 2011Q1

REPORT INFORMATION
  Report Type: 
  Country: None (occurrence: None)
  Receive Date: 20110128
  Receipt Date: 20110117
  Transmission Date: 20110831
  Serious: Yes (Other)
  Sender: FDA-Public Use
  Company Number: PHEH2011US00441

PATIENT
  Sex: Female
  Weight: 77 kg

DRUGS (1)
  1. AREDIA [Suspect]
     Indication: COLON CANCER METASTATIC
     Dosage: UNK
     Dates: start: 19990101

REACTIONS (3)
  - HYPOMAGNESAEMIA [None]
  - DIARRHOEA [None]
  - MYOPATHY [None]
